FAERS Safety Report 4295633-X (Version None)
Quarter: 2004Q1

REPORT INFORMATION
  Report Type: 
  Country: None (occurrence: None)
  Receive Date: 20040216
  Receipt Date: 20030804
  Transmission Date: 20041129
  Serious: No
  Sender: FDA-Public Use
  Company Number: US-GLAXOSMITHKLINE-A0419509A

PATIENT
  Age: 43 Year
  Sex: Female

DRUGS (3)
  1. PAXIL [Suspect]
     Indication: DEPRESSION
     Dosage: 20MG PER DAY
     Route: 048
     Dates: start: 20030601, end: 20030728
  2. MODURETIC 5-50 [Concomitant]
  3. ZOMIG [Concomitant]
     Indication: MIGRAINE

REACTIONS (5)
  - CHEST DISCOMFORT [None]
  - DIZZINESS [None]
  - NAUSEA [None]
  - SENSORY DISTURBANCE [None]
  - WEIGHT INCREASED [None]
